FAERS Safety Report 18987547 (Version 1)
Quarter: 2021Q1

REPORT INFORMATION
  Report Type: Spontaneous
  Country: BR (occurrence: BR)
  Receive Date: 20210309
  Receipt Date: 20210309
  Transmission Date: 20210420
  Serious: Yes (Other)
  Sender: FDA-Public Use
  Company Number: BR-ROCHE-2783215

PATIENT
  Sex: Male

DRUGS (8)
  1. RIVOTRIL [Suspect]
     Active Substance: CLONAZEPAM
     Indication: PRODUCT USED FOR UNKNOWN INDICATION
     Route: 048
  2. LOSARTAN. [Concomitant]
     Active Substance: LOSARTAN
     Indication: BLOOD PRESSURE MEASUREMENT
  3. AKINETON [Concomitant]
     Active Substance: BIPERIDEN HYDROCHLORIDE
  4. ALOPURINOL [Concomitant]
     Active Substance: ALLOPURINOL
  5. DEPAKOTE [Concomitant]
     Active Substance: DIVALPROEX SODIUM
  6. ELIFORE [Concomitant]
     Active Substance: DESVENLAFAXINE SUCCINATE
     Indication: DEPRESSION
     Route: 048
  7. ZOLPIDEM [Concomitant]
     Active Substance: ZOLPIDEM TARTRATE
  8. ELIFORE [Concomitant]
     Active Substance: DESVENLAFAXINE SUCCINATE
     Route: 048

REACTIONS (3)
  - Hepatitis [Unknown]
  - Muscle rigidity [Unknown]
  - Product residue present [Unknown]
